FAERS Safety Report 19163723 (Version 3)
Quarter: 2021Q2

REPORT INFORMATION
  Report Type: Spontaneous
  Country: GB (occurrence: GB)
  Receive Date: 20210421
  Receipt Date: 20210531
  Transmission Date: 20210717
  Serious: Yes (Hospitalization)
  Sender: FDA-Public Use
  Company Number: GB-ROCHE-2813301

PATIENT
  Age: 24 Year
  Sex: Male

DRUGS (7)
  1. PULMOZYME [Suspect]
     Active Substance: DORNASE ALFA
     Indication: DEPENDENCE ON RESPIRATOR
     Dates: start: 2016
  2. BETHKIS [Suspect]
     Active Substance: TOBRAMYCIN
     Indication: ASTHMA
  3. AZTREONAM LYSINE [Suspect]
     Active Substance: AZTREONAM LYSINE
     Indication: TRACHEOSTOMY
  4. PULMOZYME [Suspect]
     Active Substance: DORNASE ALFA
     Indication: PNEUMONIA
  5. PULMOZYME [Suspect]
     Active Substance: DORNASE ALFA
     Indication: TRACHEOSTOMY
  6. AZTREONAM LYSINE [Suspect]
     Active Substance: AZTREONAM LYSINE
     Indication: PNEUMONIA
  7. AZTREONAM LYSINE [Suspect]
     Active Substance: AZTREONAM LYSINE
     Indication: DEPENDENCE ON RESPIRATOR
     Dates: start: 202001

REACTIONS (3)
  - Off label use [Unknown]
  - Skin infection [Unknown]
  - Pneumonia [Recovered/Resolved]

NARRATIVE: CASE EVENT DATE: 202001
